APPROVED DRUG PRODUCT: VALPROATE SODIUM
Active Ingredient: VALPROATE SODIUM
Strength: EQ 100MG BASE/ML
Dosage Form/Route: INJECTABLE;INJECTION
Application: A076539 | Product #001 | TE Code: AP
Applicant: FRESENIUS KABI USA LLC
Approved: Jun 26, 2003 | RLD: No | RS: No | Type: RX